FAERS Safety Report 11677128 (Version 2)
Quarter: 2016Q1

REPORT INFORMATION
  Report Type: Report from Study
  Country: CZ (occurrence: CZ)
  Receive Date: 20151028
  Receipt Date: 20160218
  Transmission Date: 20160525
  Serious: No
  Sender: FDA-Public Use
  Company Number: CZ-ASTELLAS-2015US039206

PATIENT
  Age: 65 Year
  Sex: Male
  Weight: 108 kg

DRUGS (5)
  1. OMNIC TOCAS [Concomitant]
     Indication: BENIGN PROSTATIC HYPERPLASIA
     Route: 048
  2. APO PERINODOL [Concomitant]
     Indication: HYPERTENSION
     Route: 048
  3. MIRABEGRON [Suspect]
     Active Substance: MIRABEGRON
     Indication: HYPERTONIC BLADDER
     Route: 048
     Dates: start: 20141218, end: 20150921
  4. SORTIS [Concomitant]
     Active Substance: ATORVASTATIN
     Indication: HYPERTENSION
     Route: 048
  5. GODASAL [Concomitant]
     Active Substance: ASPIRIN\GLYCINE
     Indication: HYPERTENSION
     Route: 048

REACTIONS (1)
  - Hypertonic bladder [Recovered/Resolved]

NARRATIVE: CASE EVENT DATE: 20150921
